FAERS Safety Report 9900337 (Version 2)
Quarter: 2014Q3

REPORT INFORMATION
  Report Type: Spontaneous
  Country: US (occurrence: US)
  Receive Date: 20140216
  Receipt Date: 20140801
  Transmission Date: 20150326
  Serious: Yes (Hospitalization, Other)
  Sender: FDA-Public Use
  Company Number: US-009507513-1402USA007250

PATIENT
  Sex: Female

DRUGS (1)
  1. NUVARING [Suspect]
     Active Substance: ETHINYL ESTRADIOL\ETONOGESTREL
     Indication: CONTRACEPTION
     Dosage: UNK
     Route: 067
     Dates: start: 20120424, end: 20130519

REACTIONS (14)
  - Syncope [Unknown]
  - Pulmonary embolism [Unknown]
  - Nasal septal operation [Unknown]
  - Nephrolithiasis [Unknown]
  - Convulsion [Unknown]
  - Dilatation ventricular [Unknown]
  - Nasal septum deviation [Unknown]
  - Pulmonary hypertension [Unknown]
  - Renal stone removal [Unknown]
  - Attention deficit/hyperactivity disorder [Unknown]
  - Insomnia [Unknown]
  - Respiratory failure [Recovered/Resolved]
  - Tricuspid valve incompetence [Unknown]
  - Hypokalaemia [Unknown]

NARRATIVE: CASE EVENT DATE: 20130515
